FAERS Safety Report 4377219-1 (Version None)
Quarter: 2004Q2

REPORT INFORMATION
  Report Type: 
  Country: None (occurrence: None)
  Receive Date: 20040608
  Receipt Date: 20040601
  Transmission Date: 20050107
  Serious: Yes (Disabling)
  Sender: FDA-Public Use
  Company Number: THQ2003A00470

PATIENT
  Age: 85 Year
  Sex: Male

DRUGS (5)
  1. LANSOPRAZOLE [Suspect]
     Indication: DUODENAL ULCER
     Dosage: 30 MG (1D), PER ORAL
     Route: 048
     Dates: start: 20021101, end: 20021126
  2. TAMSULOSIN (TAMSULOSIN) [Suspect]
     Indication: BENIGN PROSTATIC HYPERPLASIA
     Dosage: 400 MCG (1D), PER ORAL
     Route: 048
     Dates: start: 20021108, end: 20021114
  3. TAMSULOSIN (TAMSULOSIN) [Suspect]
     Indication: URINARY RETENTION
     Dosage: 400 MCG (1D), PER ORAL
     Route: 048
     Dates: start: 20021108, end: 20021114
  4. AMOXICILLIN [Concomitant]
  5. CLARITHYROMYCIN (CLARITHYROMCIN) [Concomitant]

REACTIONS (5)
  - COLOUR BLINDNESS [None]
  - DRUG INTERACTION [None]
  - OPTIC NEURITIS RETROBULBAR [None]
  - SCOTOMA [None]
  - VISUAL ACUITY REDUCED [None]
